FAERS Safety Report 10716330 (Version 1)
Quarter: 2015Q1

REPORT INFORMATION
  Report Type: Spontaneous
  Country: US (occurrence: None)
  Receive Date: 20150115
  Receipt Date: 20150115
  Transmission Date: 20150721
  Serious: Yes (Other)
  Sender: FDA-Public Use
  Company Number: None

PATIENT
  Age: 72 Year
  Sex: Female

DRUGS (1)
  1. REVLIMID [Suspect]
     Active Substance: LENALIDOMIDE
     Dosage: 10MG  QD X21/28D  DAILY ORAL
     Route: 048
     Dates: start: 20141125, end: 20141210

REACTIONS (1)
  - Rash [None]

NARRATIVE: CASE EVENT DATE: 20150114
